FAERS Safety Report 14269351 (Version 2)
Quarter: 2019Q3

REPORT INFORMATION
  Report Type: Spontaneous
  Country: CA (occurrence: CA)
  Receive Date: 20171211
  Receipt Date: 20190726
  Transmission Date: 20191004
  Serious: Yes (Hospitalization)
  Sender: FDA-Public Use
  Company Number: CA-OTSUKA-2017_017456

PATIENT
  Age: 55 Year
  Sex: Female

DRUGS (9)
  1. CORTEF [Interacting]
     Active Substance: HYDROCORTISONE
     Dosage: 30 MG, QD
     Route: 065
  2. FLORINEF ACETATE [Concomitant]
     Active Substance: FLUDROCORTISONE ACETATE
     Indication: PRODUCT USED FOR UNKNOWN INDICATION
     Dosage: UNK
     Route: 065
  3. ABILIFY [Interacting]
     Active Substance: ARIPIPRAZOLE
     Dosage: 10 MG, QD (1 TABLET OF 10 MG EVERY DAY)
     Route: 048
  4. SYNTHROID [Concomitant]
     Active Substance: LEVOTHYROXINE SODIUM
     Indication: PRODUCT USED FOR UNKNOWN INDICATION
     Dosage: UNK
     Route: 065
  5. ABILIFY [Suspect]
     Active Substance: ARIPIPRAZOLE
     Indication: DELUSIONAL DISORDER, UNSPECIFIED TYPE
     Dosage: 5 MG, QD (1 TABLET OF 5 MG EVERY DAY)
     Route: 048
  6. ABILIFY [Interacting]
     Active Substance: ARIPIPRAZOLE
     Dosage: 7 MG, QD (1 TABLET OF 7 MG EVERY DAY)
     Route: 048
  7. CORTEF [Interacting]
     Active Substance: HYDROCORTISONE
     Indication: PRODUCT USED FOR UNKNOWN INDICATION
     Dosage: 60 MG, QD (3 TABLETS OF 20 MG EVERY DAY)
     Route: 065
  8. CORTEF [Interacting]
     Active Substance: HYDROCORTISONE
     Dosage: 10 MG, BID (2 TABLETS OF 10 MG EVERY DAY)
     Route: 065
  9. ABILIFY [Interacting]
     Active Substance: ARIPIPRAZOLE
     Dosage: 7 MG, QD (1 TABLET OF 7 MG EVERY DAY)
     Route: 048

REACTIONS (4)
  - Therapy change [Unknown]
  - Cortisol decreased [Recovering/Resolving]
  - Drug interaction [Unknown]
  - Product use in unapproved indication [Unknown]
